FAERS Safety Report 17456165 (Version 3)
Quarter: 2020Q1

REPORT INFORMATION
  Report Type: Spontaneous
  Country: US (occurrence: US)
  Receive Date: 20200225
  Receipt Date: 20200324
  Transmission Date: 20200409
  Serious: No
  Sender: FDA-Public Use
  Company Number: US-GLAXOSMITHKLINE-US2020030988

PATIENT
  Age: 79 Year
  Sex: Male

DRUGS (1)
  1. FLONASE [Suspect]
     Active Substance: FLUTICASONE PROPIONATE
     Indication: NASAL CONGESTION
     Dosage: UNK, 1D (I USE 1 AT NIGHT IN EACH NOSTRIL )
     Route: 065

REACTIONS (4)
  - Nasal discomfort [Unknown]
  - Product complaint [Unknown]
  - Incorrect dose administered [Unknown]
  - Rhinorrhoea [Unknown]
